FAERS Safety Report 9235477 (Version 1)
Quarter: 2013Q2

REPORT INFORMATION
  Report Type: Spontaneous
  Country: US (occurrence: None)
  Receive Date: 20130416
  Receipt Date: 20130416
  Transmission Date: 20140414
  Serious: Yes (Hospitalization)
  Sender: FDA-Public Use
  Company Number: None

PATIENT
  Age: 51 Year
  Sex: Female
  Weight: 82 kg

DRUGS (2)
  1. CARBOPLATIN [Suspect]
  2. PACLITAXEL (TAXOL) [Suspect]

REACTIONS (9)
  - Nausea [None]
  - Vomiting [None]
  - Blood creatinine increased [None]
  - Renal failure acute [None]
  - Acute prerenal failure [None]
  - Renal failure acute [None]
  - Constipation [None]
  - Lung neoplasm malignant [None]
  - Essential hypertension [None]
